FAERS Safety Report 4560583-8 (Version None)
Quarter: 2005Q1

REPORT INFORMATION
  Report Type: 
  Country: None (occurrence: None)
  Receive Date: 20050125
  Receipt Date: 20050114
  Transmission Date: 20050727
  Serious: Yes (Life-Threatening)
  Sender: FDA-Public Use
  Company Number: PHEH2005US00910

PATIENT
  Age: 30 Year
  Sex: Female

DRUGS (1)
  1. SIMULECT [Suspect]
     Indication: RENAL TRANSPLANT
     Dosage: 20 MG, ONCE/SINGLE
     Dates: start: 20050112, end: 20050112

REACTIONS (2)
  - CARDIAC ARREST [None]
  - RESUSCITATION [None]
